FAERS Safety Report 18645995 (Version 1)
Quarter: 2020Q4

REPORT INFORMATION
  Report Type: Spontaneous
  Country: CZ (occurrence: CZ)
  Receive Date: 20201221
  Receipt Date: 20201221
  Transmission Date: 20210114
  Serious: Yes (Other)
  Sender: FDA-Public Use
  Company Number: CZ-UCBSA-2020052027

PATIENT
  Age: 42 Year
  Sex: Female

DRUGS (3)
  1. LEVETIRACETAM. [Suspect]
     Active Substance: LEVETIRACETAM
     Indication: PARTIAL SEIZURES
     Dosage: 1000 MG PER DAY
  2. LEVETIRACETAM. [Suspect]
     Active Substance: LEVETIRACETAM
     Dosage: 2000 MILLIGRAM PER DAY
     Dates: start: 201701
  3. CARBAMAZEPINE. [Concomitant]
     Active Substance: CARBAMAZEPINE
     Indication: PARTIAL SEIZURES
     Dosage: 600 MILLIGRAM, UNK

REACTIONS (5)
  - Mental disorder [Unknown]
  - Drug intolerance [Unknown]
  - Therapeutic product effect incomplete [Unknown]
  - Somnolence [Unknown]
  - Fatigue [Unknown]
